FAERS Safety Report 6402492-5 (Version None)
Quarter: 2009Q4

REPORT INFORMATION
  Report Type: 
  Country: None (occurrence: None)
  Receive Date: 20091015
  Receipt Date: 20091002
  Transmission Date: 20100525
  Serious: Yes (Other)
  Sender: FDA-Public Use
  Company Number: FR-GENENTECH-096787

PATIENT
  Sex: Male

DRUGS (8)
  1. MABTHERA [Suspect]
     Indication: B-CELL LYMPHOMA
     Route: 042
     Dates: start: 19990501, end: 19990601
  2. CYCLOPHOSPHAMIDE [Suspect]
     Indication: B-CELL LYMPHOMA
     Dates: start: 19980201, end: 19980901
  3. DOXORUBICIN HCL [Suspect]
     Indication: LYMPHOMA
     Dates: start: 19980201, end: 19980901
  4. VINCRISTINE [Suspect]
     Indication: B-CELL LYMPHOMA
     Dates: start: 19980201, end: 19980901
  5. PREDNISONE [Suspect]
     Indication: B-CELL LYMPHOMA
     Dates: start: 19980201, end: 19980901
  6. CYTARABINE [Suspect]
     Indication: B-CELL LYMPHOMA
     Dates: start: 19981201, end: 19990401
  7. INTERFERON ALFA-2B [Suspect]
     Indication: B-CELL LYMPHOMA
     Dates: start: 19980201, end: 19980901
  8. ETOPOSIDE [Suspect]
     Indication: B-CELL LYMPHOMA
     Dosage: UNK
     Route: 065
     Dates: start: 19980201

REACTIONS (1)
  - HEPATITIS B [None]
